FAERS Safety Report 11816405 (Version 1)
Quarter: 2015Q4

REPORT INFORMATION
  Report Type: Spontaneous
  Country: US (occurrence: US)
  Receive Date: 20151209
  Receipt Date: 20151209
  Transmission Date: 20160305
  Serious: Yes (Other)
  Sender: FDA-Public Use
  Company Number: PHHY2014US135927

PATIENT
  Age: 29 Year
  Sex: Female

DRUGS (6)
  1. AMBRISENTAN [Suspect]
     Active Substance: AMBRISENTAN
     Dosage: 10 MG, QD
     Route: 065
  2. TREPROSTINIL [Suspect]
     Active Substance: TREPROSTINIL
     Indication: PULMONARY HYPERTENSION
     Dosage: 20 MG/KG, PER MIN
     Route: 042
  3. IMATINIB [Suspect]
     Active Substance: IMATINIB
     Indication: GAUCHER^S DISEASE
     Dosage: 200 MG, QD
     Route: 065
  4. IMATINIB [Suspect]
     Active Substance: IMATINIB
     Dosage: 400 MG, QD
     Route: 065
  5. TADALAFIL [Suspect]
     Active Substance: TADALAFIL
     Indication: PULMONARY HYPERTENSION
     Route: 065
  6. AMBRISENTAN [Suspect]
     Active Substance: AMBRISENTAN
     Indication: PULMONARY HYPERTENSION
     Dosage: 5 MG, QD
     Route: 065

REACTIONS (9)
  - Nasal congestion [Unknown]
  - Drug intolerance [Unknown]
  - Condition aggravated [Unknown]
  - Face oedema [Recovered/Resolved]
  - Laryngeal oedema [Unknown]
  - Haemodynamic instability [Recovering/Resolving]
  - Headache [Unknown]
  - Periorbital oedema [Recovered/Resolved]
  - Diarrhoea [Unknown]
